FAERS Safety Report 9415802 (Version 1)
Quarter: 2013Q3

REPORT INFORMATION
  Report Type: Report from Study
  Country: US (occurrence: US)
  Receive Date: 20130724
  Receipt Date: 20130724
  Transmission Date: 20140515
  Serious: Yes (Hospitalization)
  Sender: FDA-Public Use
  Company Number: US-ROCHE-1251272

PATIENT
  Age: 60 Year
  Sex: Female

DRUGS (18)
  1. BEVACIZUMAB [Suspect]
     Indication: COLORECTAL CANCER METASTATIC
     Dosage: CYCLIC
     Route: 042
     Dates: start: 20130313, end: 20130605
  2. BEVACIZUMAB [Suspect]
     Indication: ADENOCARCINOMA OF COLON
  3. OXALIPLATIN [Suspect]
     Indication: COLORECTAL CANCER METASTATIC
     Dosage: CYCLIC
     Route: 042
     Dates: start: 20130313, end: 20130619
  4. OXALIPLATIN [Suspect]
     Indication: ADENOCARCINOMA OF COLON
  5. FLUOROURACIL [Suspect]
     Indication: COLORECTAL CANCER METASTATIC
     Route: 040
     Dates: start: 20130313, end: 20130619
  6. FLUOROURACIL [Suspect]
     Indication: ADENOCARCINOMA OF COLON
     Dosage: 24 HOURS INFUSION
     Route: 041
     Dates: start: 20130313, end: 20130619
  7. FOLINIC ACID [Suspect]
     Indication: COLORECTAL CANCER METASTATIC
     Dosage: CYCLIC
     Route: 042
     Dates: start: 20130313, end: 20130619
  8. FOLINIC ACID [Suspect]
     Indication: ADENOCARCINOMA OF COLON
  9. DIOVAN HCT [Concomitant]
     Indication: HYPERTENSION
     Route: 065
     Dates: start: 19840101
  10. ATIVAN [Concomitant]
     Indication: NAUSEA
     Route: 065
     Dates: start: 20130313
  11. TAGAMET [Concomitant]
     Indication: DIVERTICULUM
     Route: 065
     Dates: start: 20130328
  12. MELATONIN [Concomitant]
     Indication: INSOMNIA
     Route: 065
     Dates: start: 201304
  13. MEGACE [Concomitant]
     Indication: DECREASED APPETITE
     Route: 065
     Dates: start: 20130418
  14. MEGACE [Concomitant]
     Indication: WEIGHT DECREASED
  15. COMPAZINE [Concomitant]
     Indication: NAUSEA
     Route: 065
     Dates: start: 201303
  16. PROVIGIL (UNITED STATES) [Concomitant]
     Indication: FATIGUE
     Route: 065
     Dates: start: 20130619
  17. OXYCODONE [Concomitant]
     Indication: ABDOMINAL PAIN
     Route: 065
     Dates: start: 201303
  18. OXYCONTIN [Concomitant]
     Indication: ABDOMINAL PAIN
     Route: 065
     Dates: start: 201303

REACTIONS (2)
  - Chest pain [Unknown]
  - Ventricular tachycardia [Not Recovered/Not Resolved]
